FAERS Safety Report 6313386-8 (Version None)
Quarter: 2009Q3

REPORT INFORMATION
  Report Type: 
  Country: None (occurrence: None)
  Receive Date: 20090818
  Receipt Date: 20090810
  Transmission Date: 20100115
  Serious: Yes (Hospitalization)
  Sender: FDA-Public Use
  Company Number: IT-PFIZER INC-2009252353

PATIENT
  Age: 54 Year

DRUGS (8)
  1. ADRIBLASTINA [Suspect]
     Indication: B-CELL LYMPHOMA
     Dosage: 100 MG, UNK
     Route: 042
     Dates: start: 20090723, end: 20090723
  2. VINCRISTINE SULFATE [Concomitant]
  3. ENDOXAN [Concomitant]
  4. MABTHERA [Concomitant]
  5. DELTACORTENE [Concomitant]
  6. FLUPHENAZINE DECANOATE [Concomitant]
  7. CLEXANE [Concomitant]
  8. ESOMEPRAZOLE MAGNESIUM [Concomitant]

REACTIONS (2)
  - BONE MARROW FAILURE [None]
  - NEUTROPENIA [None]
